FAERS Safety Report 13472563 (Version 1)
Quarter: 2017Q2

REPORT INFORMATION
  Report Type: Spontaneous
  Country: US (occurrence: US)
  Receive Date: 20170423
  Receipt Date: 20170423
  Transmission Date: 20170830
  Serious: Yes (Disabling)
  Sender: FDA-Public Use
  Company Number: None

PATIENT
  Age: 49 Year
  Sex: Female
  Weight: 100.8 kg

DRUGS (17)
  1. VICTOZA [Suspect]
     Active Substance: LIRAGLUTIDE
     Indication: BLOOD GLUCOSE INCREASED
     Dosage: QUANTITY:1 INJECTION(S);OTHER FREQUENCY:0.6 - 1.8 MG DAILY;?
     Route: 058
     Dates: start: 20161026, end: 20161122
  2. METFORMIN [Concomitant]
     Active Substance: METFORMIN HYDROCHLORIDE
  3. OMEPRAZOLE. [Concomitant]
     Active Substance: OMEPRAZOLE
  4. MULTIVITAMIN [Concomitant]
     Active Substance: VITAMINS
  5. MELATONIN [Concomitant]
     Active Substance: MELATONIN
  6. METHOCARBAMOL. [Concomitant]
     Active Substance: METHOCARBAMOL
  7. VICTOZA [Suspect]
     Active Substance: LIRAGLUTIDE
     Indication: WEIGHT DECREASED
     Dosage: QUANTITY:1 INJECTION(S);OTHER FREQUENCY:0.6 - 1.8 MG DAILY;?
     Route: 058
     Dates: start: 20161026, end: 20161122
  8. SIMVASTATIN. [Concomitant]
     Active Substance: SIMVASTATIN
  9. BIOFREEZE [Concomitant]
     Active Substance: MENTHOL
  10. FLONASE [Concomitant]
     Active Substance: FLUTICASONE PROPIONATE
  11. ASPIRIN. [Concomitant]
     Active Substance: ASPIRIN
  12. VITAMIN D3 [Concomitant]
     Active Substance: CHOLECALCIFEROL
  13. PROBIOTIC [Concomitant]
     Active Substance: PROBIOTICS NOS
  14. SALON PAS PATCHES [Concomitant]
  15. MYOFLEX [Concomitant]
     Active Substance: TROLAMINE SALICYLATE
  16. STOOL SOFTENER (DOCUSATE SODIUM) [Concomitant]
     Active Substance: DOCUSATE SODIUM
  17. NAPROXEN SODIUM. [Concomitant]
     Active Substance: NAPROXEN SODIUM

REACTIONS (1)
  - Pancreatitis acute [None]

NARRATIVE: CASE EVENT DATE: 20161110
